FAERS Safety Report 6614845-0 (Version None)
Quarter: 2010Q1

REPORT INFORMATION
  Report Type: 
  Country: None (occurrence: None)
  Receive Date: 20100305
  Receipt Date: 20100224
  Transmission Date: 20100710
  Serious: Yes (Other)
  Sender: FDA-Public Use
  Company Number: US-BIOGENIDEC-2010BI004179

PATIENT
  Age: 44 Year
  Sex: Female

DRUGS (3)
  1. TYSABRI [Suspect]
     Indication: MULTIPLE SCLEROSIS
     Route: 042
     Dates: start: 20091019, end: 20100209
  2. TYSABRI [Suspect]
     Route: 042
     Dates: start: 20071212, end: 20090602
  3. TYSABRI [Suspect]
     Route: 042
     Dates: start: 20070411, end: 20070411

REACTIONS (2)
  - BREAST CANCER STAGE III [None]
  - MULTIPLE SCLEROSIS [None]
